FAERS Safety Report 4538625-5 (Version None)
Quarter: 2004Q4

REPORT INFORMATION
  Report Type: 
  Country: None (occurrence: None)
  Receive Date: 20041227
  Receipt Date: 20010919
  Transmission Date: 20050328
  Serious: Yes (Hospitalization)
  Sender: FDA-Public Use
  Company Number: 10994291

PATIENT
  Sex: Female
  Weight: 3 kg

DRUGS (12)
  1. ZERIT [Suspect]
     Dosage: THERAPY THROUGH ENTIRE GESTATION
     Route: 064
     Dates: start: 20000201, end: 20001013
  2. ZERIT [Suspect]
     Route: 048
     Dates: start: 20001013, end: 20001124
  3. VIDEX [Suspect]
     Dosage: THERAPY THROUGH ENTIRE GESTATION
     Route: 064
     Dates: start: 20000201, end: 20001013
  4. VIRACEPT [Suspect]
     Dosage: THERAPY THROUGH ENTIRE GESTATION
     Route: 064
     Dates: start: 20000201, end: 20001013
  5. RETROVIR [Suspect]
     Dosage: MOTHER RECEIVED INFUSION AT DELIVERY OF 200 MG/20 ML
     Route: 064
     Dates: start: 20001013, end: 20001013
  6. GYNOPEVARYL [Concomitant]
     Route: 064
  7. LEXOMIL [Concomitant]
     Route: 064
  8. POLARAMINE [Concomitant]
     Route: 064
  9. DIPROSONE [Concomitant]
     Route: 064
  10. IRON [Concomitant]
     Route: 064
  11. VITAMIN [Concomitant]
     Route: 064
  12. LOMEXIN [Concomitant]

REACTIONS (19)
  - ABDOMINAL DISTENSION [None]
  - ALANINE AMINOTRANSFERASE INCREASED [None]
  - ASPARTATE AMINOTRANSFERASE INCREASED [None]
  - BLOOD LACTATE DEHYDROGENASE INCREASED [None]
  - BLOOD LACTIC ACID INCREASED [None]
  - CONSTIPATION [None]
  - DIARRHOEA [None]
  - DIARRHOEA NEONATAL [None]
  - GASTROOESOPHAGEAL REFLUX DISEASE [None]
  - HYPERTRIGLYCERIDAEMIA [None]
  - MACROCYTOSIS [None]
  - MASTITIS [None]
  - NEONATAL DISORDER [None]
  - NEUTROPENIA [None]
  - NEUTROPENIA NEONATAL [None]
  - PREGNANCY [None]
  - RHINITIS [None]
  - THROMBOCYTOPENIA [None]
  - THROMBOCYTOPENIA NEONATAL [None]
